APPROVED DRUG PRODUCT: EXELON
Active Ingredient: RIVASTIGMINE TARTRATE
Strength: EQ 6MG BASE **Federal Register determination that product was not discontinued or withdrawn for safety or effectiveness reasons**
Dosage Form/Route: CAPSULE;ORAL
Application: N020823 | Product #006
Applicant: NOVARTIS PHARMACEUTICALS CORP
Approved: Apr 21, 2000 | RLD: Yes | RS: No | Type: DISCN